FAERS Safety Report 17652911 (Version 2)
Quarter: 2020Q2

REPORT INFORMATION
  Report Type: Report from Study
  Country: None (occurrence: DK)
  Receive Date: 20200409
  Receipt Date: 20200423
  Transmission Date: 20200713
  Serious: Yes (Hospitalization)
  Sender: FDA-Public Use
  Company Number: DK-ABBVIE-20P-044-3347533-00

PATIENT
  Age: 85 Year
  Sex: Male

DRUGS (22)
  1. RITUXIMAB. [Suspect]
     Active Substance: RITUXIMAB
     Dosage: DAY 1 OF CYCLE 1
     Route: 042
     Dates: start: 20190808, end: 20190808
  2. TICAGRELOR. [Concomitant]
     Active Substance: TICAGRELOR
     Indication: THROMBOSIS PROPHYLAXIS
     Dates: start: 20161230
  3. DEXAMETHASON AND TOBRAMYCIN [Concomitant]
     Indication: OTOSCLEROSIS
     Dates: start: 20161208
  4. TOILAX [Concomitant]
     Active Substance: BISACODYL
     Indication: CONSTIPATION
     Dates: start: 20191031
  5. MABLET [Concomitant]
     Indication: MINERAL SUPPLEMENTATION
     Dates: start: 20200117
  6. VENETOCLAX. [Suspect]
     Active Substance: VENETOCLAX
     Route: 048
     Dates: start: 20190725, end: 20190731
  7. RITUXIMAB. [Suspect]
     Active Substance: RITUXIMAB
     Dosage: DAY 1 OF CYCLES 2-6
     Route: 042
     Dates: start: 20190905, end: 20200107
  8. GLYCERYLNITRAT [Concomitant]
     Indication: AORTIC ARTERIOSCLEROSIS
     Dates: start: 20141104
  9. VENETOCLAX. [Suspect]
     Active Substance: VENETOCLAX
     Route: 048
     Dates: start: 20190710, end: 20190717
  10. RITUXIMAB. [Suspect]
     Active Substance: RITUXIMAB
     Indication: CHRONIC LYMPHOCYTIC LEUKAEMIA
     Dosage: DAY 1 OF CYCLE 1
     Route: 042
     Dates: start: 20150713, end: 20150713
  11. RITUXIMAB. [Suspect]
     Active Substance: RITUXIMAB
     Dosage: DAY 1 OF CYCLES 2-6
     Route: 042
     Dates: start: 20150810, end: 20151130
  12. ELIQUIS [Concomitant]
     Active Substance: APIXABAN
     Indication: CEREBROVASCULAR ACCIDENT PROPHYLAXIS
     Dates: start: 20200102
  13. VENETOCLAX. [Suspect]
     Active Substance: VENETOCLAX
     Route: 048
     Dates: start: 20190801
  14. BENDAMUSTINE [Suspect]
     Active Substance: BENDAMUSTINE
     Indication: CHRONIC LYMPHOCYTIC LEUKAEMIA
     Dosage: DAY 1 AND 2 OF CYCLE 1-6
     Route: 042
     Dates: start: 20150713, end: 20151201
  15. ALLOPURINOL. [Concomitant]
     Active Substance: ALLOPURINOL
     Indication: PROPHYLAXIS
     Dates: start: 20160702, end: 20190711
  16. FINASTERID [Concomitant]
     Active Substance: FINASTERIDE
     Indication: BENIGN PROSTATIC HYPERPLASIA
     Dates: start: 20111221
  17. MAGNESIA [Concomitant]
     Active Substance: MAGNESIUM HYDROXIDE
     Indication: CONSTIPATION
     Dates: start: 20150916
  18. NEPAFENAC [Concomitant]
     Active Substance: NEPAFENAC
     Indication: OTOSCLEROSIS
     Dates: start: 20161208
  19. VENETOCLAX. [Suspect]
     Active Substance: VENETOCLAX
     Indication: CHRONIC LYMPHOCYTIC LEUKAEMIA
     Route: 048
     Dates: start: 20190703, end: 20190709
  20. VENETOCLAX. [Suspect]
     Active Substance: VENETOCLAX
     Route: 048
     Dates: start: 20190718, end: 20190724
  21. ACETYLSALICYLIC ACID [Concomitant]
     Active Substance: ASPIRIN
     Indication: THROMBOSIS PROPHYLAXIS
     Dates: start: 20111221
  22. SIMVASTATIN. [Concomitant]
     Active Substance: SIMVASTATIN
     Indication: HYPERCHOLESTEROLAEMIA
     Dates: start: 20111221

REACTIONS (1)
  - Pneumonia pseudomonal [Recovered/Resolved]

NARRATIVE: CASE EVENT DATE: 20200327
